FAERS Safety Report 7638719-1 (Version None)
Quarter: 2011Q3

REPORT INFORMATION
  Report Type: 
  Country: None (occurrence: None)
  Receive Date: 20110720
  Receipt Date: 20110706
  Transmission Date: 20111222
  Serious: Yes (Life-Threatening, Other)
  Sender: FDA-Public Use
  Company Number: 2011AP001414

PATIENT
  Age: 86 Year
  Sex: Male

DRUGS (2)
  1. AMLODIPINE BESYLATE [Suspect]
     Indication: HYPERTENSION
     Dosage: 5 MG, PO
     Route: 048
     Dates: start: 20100301, end: 20110301
  2. BISOPROLOL FUMARATE [Concomitant]

REACTIONS (4)
  - AORTIC VALVE CALCIFICATION [None]
  - CARDIAC MURMUR [None]
  - EXTRASYSTOLES [None]
  - HEART RATE IRREGULAR [None]
